FAERS Safety Report 20454193 (Version 1)
Quarter: 2022Q1

REPORT INFORMATION
  Report Type: Spontaneous
  Country: US (occurrence: None)
  Receive Date: 20220209
  Receipt Date: 20220209
  Transmission Date: 20220423
  Serious: Yes (Other)
  Sender: FDA-Public Use
  Company Number: None

PATIENT
  Age: 83 Year
  Sex: Male
  Weight: 79.4 kg

DRUGS (6)
  1. CETUXIMAB [Suspect]
     Active Substance: CETUXIMAB
     Indication: Rectal cancer
     Dosage: OTHER FREQUENCY : ONCE;?
     Route: 042
     Dates: start: 20220209, end: 20220209
  2. dexamethasone 12 mg IV [Concomitant]
     Dates: start: 20220209, end: 20220209
  3. diphenhydramine 25 mg PO [Concomitant]
     Dates: start: 20220209, end: 20220209
  4. leucovorin 780 mg IV [Concomitant]
     Dates: start: 20220209, end: 20220209
  5. fluorouracil 780 gm IVP [Concomitant]
     Dates: start: 20220209, end: 20220209
  6. fluorouracil 4680 mg CIV over 46 hours [Concomitant]
     Dates: start: 20220209, end: 20220209

REACTIONS (4)
  - Urticaria [None]
  - Infusion related reaction [None]
  - Pruritus [None]
  - Erythema [None]

NARRATIVE: CASE EVENT DATE: 20220209
